FAERS Safety Report 5397693-1 (Version None)
Quarter: 2007Q3

REPORT INFORMATION
  Report Type: 
  Country: None (occurrence: None)
  Receive Date: 20070723
  Receipt Date: 20070709
  Transmission Date: 20080115
  Serious: Yes (Disabling, Other)
  Sender: FDA-Public Use
  Company Number: 158528ISR

PATIENT
  Age: 50 Year
  Sex: Male

DRUGS (2)
  1. SIMVASTATIN [Suspect]
     Dosage: 20 MG (20 MG, 1 ORAL
     Route: 048
     Dates: start: 20070530
  2. ATORVASTATIN CALCIUM [Suspect]
     Dosage: 10 MG (10 MG, 1 ORAL
     Route: 048
     Dates: start: 20050914

REACTIONS (1)
  - TENDONITIS [None]
